FAERS Safety Report 6731377-X (Version None)
Quarter: 2010Q2

REPORT INFORMATION
  Report Type: 
  Country: None (occurrence: None)
  Receive Date: 20100518
  Receipt Date: 20100518
  Transmission Date: 20101027
  Serious: No
  Sender: FDA-Public Use
  Company Number: None

PATIENT
  Age: 80 Year
  Sex: Male
  Weight: 80.78 kg

DRUGS (1)
  1. WARFARIN SODIUM [Suspect]
     Indication: HEART VALVE REPLACEMENT
     Dosage: 5 MG EVERY DAY PO
     Route: 048
     Dates: start: 20100314, end: 20100315

REACTIONS (1)
  - INTERNATIONAL NORMALISED RATIO INCREASED [None]
